FAERS Safety Report 8622224-X (Version None)
Quarter: 2012Q3

REPORT INFORMATION
  Report Type: 
  Country: None (occurrence: None)
  Receive Date: 20120827
  Receipt Date: 20120818
  Transmission Date: 20120928
  Serious: Yes (Hospitalization, Other)
  Sender: FDA-Public Use
  Company Number: AT-AMGEN-AUTSP2012050627

PATIENT
  Age: 82 Year
  Sex: Male
  Weight: 72 kg

DRUGS (2)
  1. VECTIBIX [Suspect]
     Indication: COLORECTAL CANCER
     Dosage: 3.5 MG/KG, Q2WK
     Route: 042
     Dates: start: 20120315, end: 20120525
  2. IRINOTECAN HYDROCHLORIDE [Concomitant]
     Indication: COLORECTAL CANCER
     Dosage: 130 MG/M2, Q2WK
     Route: 042
     Dates: start: 20120315, end: 20120525

REACTIONS (2)
  - PULMONARY FIBROSIS [None]
  - PNEUMONIA [None]
